FAERS Safety Report 22528858 (Version 1)
Quarter: 2023Q2

REPORT INFORMATION
  Report Type: Spontaneous
  Country: US (occurrence: US)
  Receive Date: 20230607
  Receipt Date: 20230607
  Transmission Date: 20230722
  Serious: Yes (Other)
  Sender: FDA-Public Use
  Company Number: US-STRIDES ARCOLAB LIMITED-2022SP015257

PATIENT
  Age: 73 Year
  Sex: Male

DRUGS (6)
  1. HYDROCORTISONE [Suspect]
     Active Substance: HYDROCORTISONE
     Indication: Extramammary Paget^s disease
     Dosage: UNK; TOPICAL CREAM
     Route: 061
  2. HYDROCORTISONE [Suspect]
     Active Substance: HYDROCORTISONE
     Indication: Malignant melanoma in situ
  3. CEPHALEXIN [Suspect]
     Active Substance: CEPHALEXIN
     Indication: Extramammary Paget^s disease
     Dosage: UNK
     Route: 048
  4. CEPHALEXIN [Suspect]
     Active Substance: CEPHALEXIN
     Indication: Malignant melanoma in situ
  5. ECONAZOLE [Suspect]
     Active Substance: ECONAZOLE
     Indication: Extramammary Paget^s disease
     Dosage: UNK
     Route: 061
  6. ECONAZOLE [Suspect]
     Active Substance: ECONAZOLE
     Indication: Malignant melanoma in situ

REACTIONS (2)
  - Drug ineffective [Unknown]
  - Off label use [Unknown]
